FAERS Safety Report 7476949-2 (Version None)
Quarter: 2011Q2

REPORT INFORMATION
  Report Type: 
  Country: None (occurrence: None)
  Receive Date: 20110512
  Receipt Date: 20100603
  Transmission Date: 20111010
  Serious: No
  Sender: FDA-Public Use
  Company Number: US-AMGEN-TCS416250

PATIENT
  Age: 65 Year
  Sex: Female

DRUGS (3)
  1. ENBREL [Suspect]
     Indication: RHEUMATOID ARTHRITIS
     Dosage: 50 MG, QWK
     Route: 058
     Dates: start: 20090115
  2. ADALIMUMAB [Concomitant]
  3. ENBREL [Suspect]
     Indication: OSTEOARTHRITIS

REACTIONS (2)
  - PAIN [None]
  - INJECTION SITE PAIN [None]
